FAERS Safety Report 19432217 (Version 3)
Quarter: 2021Q3

REPORT INFORMATION
  Report Type: Spontaneous
  Country: GB (occurrence: GB)
  Receive Date: 20210617
  Receipt Date: 20210811
  Transmission Date: 20211014
  Serious: Yes (Hospitalization)
  Sender: FDA-Public Use
  Company Number: GB-VERTEX PHARMACEUTICALS-2021-009141

PATIENT
  Age: 28 Year
  Sex: Female

DRUGS (7)
  1. PROMIXIN [COLISTIMETHATE SODIUM] [Concomitant]
     Active Substance: COLISTIMETHATE SODIUM
     Dosage: 1 MU, BID
  2. KALYDECO [Suspect]
     Active Substance: IVACAFTOR
     Indication: CYSTIC FIBROSIS
     Dosage: 150 MG IVACAFTOR IN PM, QD
     Route: 048
     Dates: start: 20201211
  3. KAFTRIO [Suspect]
     Active Substance: ELEXACAFTOR\IVACAFTOR\TEZACAFTOR
     Indication: CYSTIC FIBROSIS
     Dosage: 2 TABLETS (TEZ/ IVA/ ELEXA), IN MORNING
     Route: 048
     Dates: start: 20201211
  4. ADCAL D3 [Concomitant]
     Active Substance: CALCIUM CARBONATE\CHOLECALCIFEROL
     Dosage: 2 CAPLETS IN MORNING
  5. CO?AMOXICLAVE [Concomitant]
     Active Substance: AMOXICILLIN\CLAVULANATE POTASSIUM
     Dosage: 625 MG IN MORNING
  6. CREON [Concomitant]
     Active Substance: PANCRELIPASE AMYLASE\PANCRELIPASE LIPASE\PANCRELIPASE PROTEASE
     Dosage: 25,000 UNIT CAPSULES? TAKES AROUND 13 CAPSULES DAILY
  7. MENADIOL [Concomitant]
     Active Substance: MENADIOL
     Dosage: 10 MG, QD

REACTIONS (3)
  - Hypertension [Not Recovered/Not Resolved]
  - Papilloedema [Not Recovered/Not Resolved]
  - Optic neuritis [Not Recovered/Not Resolved]

NARRATIVE: CASE EVENT DATE: 20210507
